FAERS Safety Report 6733052-4 (Version None)
Quarter: 2010Q2

REPORT INFORMATION
  Report Type: 
  Country: None (occurrence: None)
  Receive Date: 20100518
  Receipt Date: 20100504
  Transmission Date: 20101027
  Serious: No
  Sender: FDA-Public Use
  Company Number: 001637

PATIENT
  Age: 75 Year
  Sex: Male

DRUGS (2)
  1. VIMPAT [Suspect]
     Indication: EPILEPSY
     Dosage: (50 MG BID, HALF TABLET OF 100MG ORAL)
     Route: 048
     Dates: start: 20090201, end: 20090915
  2. LEVETIRACETAM [Concomitant]

REACTIONS (4)
  - BALANCE DISORDER [None]
  - DISTURBANCE IN ATTENTION [None]
  - FATIGUE [None]
  - PERIPHERAL VASCULAR DISORDER [None]
